FAERS Safety Report 11051516 (Version 1)
Quarter: 2015Q2

REPORT INFORMATION
  Report Type: Spontaneous
  Country: US (occurrence: None)
  Receive Date: 20150420
  Receipt Date: 20150420
  Transmission Date: 20150821
  Serious: No
  Sender: FDA-Public Use
  Company Number: None

PATIENT
  Age: 51 Year
  Sex: Female
  Weight: 104.33 kg

DRUGS (2)
  1. NASONEX [Suspect]
     Active Substance: MOMETASONE FUROATE
     Indication: HAEMORRHOID OPERATION
  2. NASONEX [Suspect]
     Active Substance: MOMETASONE FUROATE
     Indication: RHINORRHOEA

REACTIONS (2)
  - Nasal polyps [None]
  - Rectal polyp [None]
